FAERS Safety Report 8304046-2 (Version None)
Quarter: 2012Q1

REPORT INFORMATION
  Report Type: 
  Country: None (occurrence: None)
  Receive Date: 20120326
  Receipt Date: 20120105
  Transmission Date: 20120608
  Serious: Yes (Other)
  Sender: FDA-Public Use
  Company Number: PHEH2012US000694

PATIENT
  Age: 68 Year
  Sex: Male

DRUGS (11)
  1. VITAMIN E [Concomitant]
  2. DULCOLAX [Concomitant]
  3. VITAMIN TAB [Concomitant]
  4. OXYCONTIN [Concomitant]
  5. ALPRAZOLAM [Concomitant]
  6. TASIGNA [Suspect]
     Indication: CHRONIC MYELOID LEUKAEMIA
     Dosage: 400 MG, BID, ORAL
     Route: 048
     Dates: start: 20100801
  7. FENTANYL [Concomitant]
  8. ATENOLOL [Concomitant]
  9. BETAMETHASONE [Concomitant]
  10. CLOTRIMAZOLE [Concomitant]
  11. ALTACE [Concomitant]

REACTIONS (1)
  - PULMONARY OEDEMA [None]
